FAERS Safety Report 8834698 (Version 2)
Quarter: 2013Q1

REPORT INFORMATION
  Report Type: Report from Study
  Country: US (occurrence: US)
  Receive Date: 20121010
  Receipt Date: 20130320
  Transmission Date: 20140127
  Serious: Yes (Hospitalization)
  Sender: FDA-Public Use
  Company Number: US-ROCHE-1139495

PATIENT
  Age: 74 Year
  Sex: Female
  Weight: 89.89 kg

DRUGS (11)
  1. TRASTUZUMAB [Suspect]
     Indication: BREAST CANCER
     Route: 042
     Dates: start: 20120918
  2. CARBOPLATIN [Suspect]
     Indication: BREAST CANCER
     Route: 042
     Dates: start: 20120918
  3. DOCETAXEL [Suspect]
     Indication: BREAST CANCER
     Route: 042
     Dates: start: 20120918
  4. OMEPRAZOLE [Concomitant]
     Route: 065
     Dates: start: 200912
  5. LEVOTHYROXINE [Concomitant]
     Route: 065
     Dates: start: 198207
  6. ATENOLOL [Concomitant]
     Dosage: TOTAL DAILY DOSE:50-25 MG
     Route: 065
     Dates: start: 197011
  7. EXFORGE [Concomitant]
     Dosage: TOTAL DAILY DOSE:5-320MG
     Route: 065
     Dates: start: 197011
  8. NORCO [Concomitant]
     Dosage: TOTAL DAILY DOSE:7.5/325 MG
     Route: 065
     Dates: start: 201207
  9. NEUPOGEN [Concomitant]
  10. LOPERAMIDE [Concomitant]
  11. PERTUZUMAB [Suspect]
     Indication: BREAST CANCER
     Route: 042
     Dates: start: 20120918

REACTIONS (1)
  - Urosepsis [Recovered/Resolved]
